FAERS Safety Report 13518932 (Version 3)
Quarter: 2017Q2

REPORT INFORMATION
  Report Type: Spontaneous
  Country: US (occurrence: US)
  Receive Date: 20170505
  Receipt Date: 20170605
  Transmission Date: 20170830
  Serious: Yes (Life-Threatening, Hospitalization)
  Sender: FDA-Public Use
  Company Number: US-UNITED THERAPEUTICS-UNT-2017-006332

PATIENT
  Age: 50 Year
  Sex: Female
  Weight: 104.31 kg

DRUGS (3)
  1. REMODULIN [Suspect]
     Active Substance: TREPROSTINIL
     Dosage: UNK
     Route: 058
     Dates: start: 20150911
  2. REMODULIN [Suspect]
     Active Substance: TREPROSTINIL
     Indication: PULMONARY ARTERIAL HYPERTENSION
     Dosage: 0.015 ?G/KG, CONTINUING
     Route: 058
     Dates: start: 20150908
  3. REMODULIN [Suspect]
     Active Substance: TREPROSTINIL
     Dosage: UNK
     Route: 041

REACTIONS (7)
  - Accidental overdose [Unknown]
  - Respiratory failure [Unknown]
  - Therapy cessation [Unknown]
  - Device leakage [Unknown]
  - Myocardial infarction [Unknown]
  - Limb injury [Unknown]
  - Medical device site infection [Unknown]

NARRATIVE: CASE EVENT DATE: 20170519
